FAERS Safety Report 4429547-9 (Version None)
Quarter: 2004Q3

REPORT INFORMATION
  Report Type: 
  Country: None (occurrence: None)
  Receive Date: 20040819
  Receipt Date: 20040709
  Transmission Date: 20050211
  Serious: Yes (Other)
  Sender: FDA-Public Use
  Company Number: GB-GLAXOSMITHKLINE-B0338534A

PATIENT
  Age: 52 Year
  Sex: Female

DRUGS (1)
  1. SEROXAT [Suspect]
     Route: 065

REACTIONS (11)
  - ABNORMAL BEHAVIOUR [None]
  - ADVERSE DRUG REACTION [None]
  - DRUG WITHDRAWAL SYNDROME [None]
  - ECONOMIC PROBLEM [None]
  - FEELING ABNORMAL [None]
  - LOSS OF EMPLOYMENT [None]
  - PERSONALITY CHANGE [None]
  - SELF ESTEEM DECREASED [None]
  - STRESS SYMPTOMS [None]
  - SUICIDE ATTEMPT [None]
  - THEFT [None]
